FAERS Safety Report 21645105 (Version 1)
Quarter: 2022Q4

REPORT INFORMATION
  Report Type: Spontaneous
  Country: ES (occurrence: ES)
  Receive Date: 20221125
  Receipt Date: 20221125
  Transmission Date: 20230113
  Serious: Yes (Other)
  Sender: FDA-Public Use
  Company Number: None

PATIENT
  Age: 66 Year
  Sex: Male
  Weight: 77 kg

DRUGS (3)
  1. LINEZOLID [Suspect]
     Active Substance: LINEZOLID
     Indication: Pyrexia
     Dosage: LINEZOLID (1279A)  , UNIT DOSE :  600 MG  , FREQUENCY TIME : 1 DAY  , DURATION : 8 DAYS
     Dates: start: 20220708, end: 20220715
  2. PIPERACILLIN AND TAZOBACTAM [Suspect]
     Active Substance: PIPERACILLIN SODIUM\TAZOBACTAM SODIUM
     Indication: Pyrexia
     Dosage: 4GR/500MG , UNIT DOSE : 1 DF  , FREQUENCY TIME : 12 HOUR  , DURATION : 9 DAYS
     Dates: start: 20220707, end: 20220715
  3. SOTROVIMAB [Suspect]
     Active Substance: SOTROVIMAB
     Indication: COVID-19
     Dosage: UNIT DOSE :  500 MG  , FREQUENCY TIME : 1 TOTAL  , DURATION : 1 DAY
     Dates: start: 20220708, end: 20220708

REACTIONS (4)
  - Diarrhoea [Recovered/Resolved]
  - Pyrexia [Recovered/Resolved]
  - Alanine aminotransferase [Recovered/Resolved]
  - Aspartate aminotransferase increased [Recovered/Resolved]

NARRATIVE: CASE EVENT DATE: 20220709
